FAERS Safety Report 5288982-X (Version None)
Quarter: 2007Q2

REPORT INFORMATION
  Report Type: 
  Country: None (occurrence: None)
  Receive Date: 20070405
  Receipt Date: 20070329
  Transmission Date: 20071010
  Serious: Yes (Hospitalization)
  Sender: FDA-Public Use
  Company Number: US-PFIZER INC-2007018512

PATIENT
  Sex: Male
  Weight: 119 kg

DRUGS (7)
  1. SUTENT [Suspect]
     Indication: METASTATIC RENAL CELL CARCINOMA
     Route: 048
  2. CLONIDINE [Concomitant]
     Route: 048
     Dates: start: 20060831, end: 20070309
  3. AMBIEN [Concomitant]
     Route: 048
  4. ALLOPURINOL [Concomitant]
     Route: 048
  5. NEXIUM [Concomitant]
     Route: 048
     Dates: start: 20060113, end: 20070309
  6. NORVASC [Concomitant]
     Route: 048
  7. ATENOLOL [Concomitant]
     Route: 048
     Dates: start: 20070306, end: 20070309

REACTIONS (2)
  - BRADYCARDIA [None]
  - HYPOTHYROIDISM [None]
